FAERS Safety Report 4586652-4 (Version None)
Quarter: 2005Q1

REPORT INFORMATION
  Report Type: 
  Country: None (occurrence: None)
  Receive Date: 20050218
  Receipt Date: 20040927
  Transmission Date: 20050727
  Serious: No
  Sender: FDA-Public Use
  Company Number: US-BRISTOL-MYERS SQUIBB COMPANY-12713996

PATIENT
  Age: 45 Year
  Sex: Female
  Weight: 87 kg

DRUGS (8)
  1. TAXOL [Suspect]
     Indication: OVARIAN CANCER
     Route: 042
  2. CARBOPLATIN [Suspect]
     Indication: OVARIAN CANCER
     Route: 042
  3. BENADRYL [Concomitant]
     Indication: PREMEDICATION
     Route: 042
  4. ATIVAN [Concomitant]
     Indication: PREMEDICATION
     Route: 042
  5. DEXAMETHASONE [Concomitant]
     Indication: PREMEDICATION
     Route: 042
  6. RANITIDINE [Concomitant]
     Indication: PREMEDICATION
     Route: 042
  7. ALOXI [Concomitant]
     Indication: PREMEDICATION
     Route: 042
  8. EMEND [Concomitant]
     Indication: PREMEDICATION
     Dosage: REDUCED TO 80 MG (SECOND AND THIRD TREATMENT)
     Route: 048

REACTIONS (2)
  - HEADACHE [None]
  - NAUSEA [None]
